FAERS Safety Report 5879640-9 (Version None)
Quarter: 2008Q3

REPORT INFORMATION
  Report Type: 
  Country: None (occurrence: None)
  Receive Date: 20080912
  Receipt Date: 20080909
  Transmission Date: 20090109
  Serious: Yes (Other)
  Sender: FDA-Public Use
  Company Number: US-ABBOTT-08P-163-0475310-00

PATIENT
  Sex: Male

DRUGS (3)
  1. ZEMPLAR [Suspect]
     Indication: HYPERPARATHYROIDISM
     Dates: start: 20071020
  2. CALCIUM D3 [Concomitant]
     Indication: DRUG USE FOR UNKNOWN INDICATION
     Dosage: 600MG/400U
     Dates: start: 20071020
  3. DIAVAN [Concomitant]
     Indication: DRUG USE FOR UNKNOWN INDICATION

REACTIONS (1)
  - CALCULUS BLADDER [None]
